FAERS Safety Report 5663319-2 (Version None)
Quarter: 2008Q1

REPORT INFORMATION
  Report Type: 
  Country: None (occurrence: None)
  Receive Date: 20080307
  Receipt Date: 20080227
  Transmission Date: 20080703
  Serious: Yes (Other)
  Sender: FDA-Public Use
  Company Number: THQ2008A00361

PATIENT
  Age: 46 Year
  Sex: Male

DRUGS (2)
  1. ACTOS [Suspect]
     Indication: TYPE 2 DIABETES MELLITUS
     Dosage: 45 MG (45 MG, 1 IN 1 D), PER ORAL
     Route: 048
     Dates: end: 20080115
  2. GLUCOPHAGE [Concomitant]

REACTIONS (1)
  - EYE OEDEMA [None]
